FAERS Safety Report 5006508-2 (Version None)
Quarter: 2006Q2

REPORT INFORMATION
  Report Type: 
  Country: None (occurrence: None)
  Receive Date: 20060519
  Receipt Date: 20060510
  Transmission Date: 20061013
  Serious: Yes (Hospitalization)
  Sender: FDA-Public Use
  Company Number: US-SANOFI-SYNTHELABO-A03200602969

PATIENT
  Age: 71 Year
  Sex: Male

DRUGS (10)
  1. PLAVIX [Suspect]
     Indication: CEREBROVASCULAR ACCIDENT
     Route: 048
     Dates: start: 20060129, end: 20060101
  2. PLAVIX [Suspect]
     Indication: MYOCARDIAL INFARCTION
     Route: 048
     Dates: start: 20060129, end: 20060101
  3. GLYBURIDE [Concomitant]
     Dosage: UNK
     Route: 048
  4. GLUCOPHAGE [Concomitant]
     Dosage: UNK
     Route: 048
  5. TOPROL-XL [Concomitant]
     Dosage: UNK
     Route: 048
  6. LISINOPRIL [Concomitant]
     Dosage: UNK
     Route: 048
  7. PRAVACHOL [Concomitant]
     Dosage: UNK
     Route: 048
  8. PREVACID [Concomitant]
     Dosage: UNK
     Route: 048
  9. ASPIRIN [Concomitant]
     Dosage: UNK
     Route: 048
  10. OMEPRAZOLE [Concomitant]

REACTIONS (7)
  - CHEST PAIN [None]
  - DIZZINESS [None]
  - INFECTION [None]
  - OESOPHAGEAL STENOSIS [None]
  - PHARYNGEAL OEDEMA [None]
  - PYREXIA [None]
  - WEIGHT DECREASED [None]
